FAERS Safety Report 16686611 (Version 1)
Quarter: 2019Q3

REPORT INFORMATION
  Report Type: Spontaneous
  Country: GB (occurrence: GB)
  Receive Date: 20190809
  Receipt Date: 20190809
  Transmission Date: 20191004
  Serious: Yes (Other)
  Sender: FDA-Public Use
  Company Number: GB-TEVA-2019-GB-1089314

PATIENT
  Age: 19 Year
  Sex: Female
  Weight: 127 kg

DRUGS (1)
  1. LAMOTRIGINE. [Suspect]
     Active Substance: LAMOTRIGINE
     Indication: EPILEPSY
     Dosage: 200 MG
     Route: 048
     Dates: start: 201709

REACTIONS (1)
  - Abnormal weight gain [Not Recovered/Not Resolved]
